FAERS Safety Report 25569328 (Version 1)
Quarter: 2025Q3

REPORT INFORMATION
  Report Type: Spontaneous
  Country: EU (occurrence: EU)
  Receive Date: 20250716
  Receipt Date: 20250716
  Transmission Date: 20251020
  Serious: Yes (Hospitalization, Other)
  Sender: SANDOZ
  Company Number: EU-AUROBINDO-AUR-APL-2018-060819

PATIENT
  Age: 12 Year
  Sex: Male

DRUGS (2)
  1. METOCLOPRAMIDE [Suspect]
     Active Substance: METOCLOPRAMIDE
     Indication: Vomiting
     Dosage: 5 MILLIGRAM, ONCE A DAY
     Route: 042
  2. ACETAMINOPHEN [Suspect]
     Active Substance: ACETAMINOPHEN
     Indication: Headache
     Dosage: 500 MG, QD
     Route: 042

REACTIONS (9)
  - Discomfort [Unknown]
  - Anxiety [Unknown]
  - Extrapyramidal disorder [Unknown]
  - Headache [Unknown]
  - Psychomotor hyperactivity [Unknown]
  - Post-traumatic neck syndrome [Unknown]
  - Agitation [Unknown]
  - Leukocytosis [Unknown]
  - Drug ineffective [Unknown]
